FAERS Safety Report 15556095 (Version 3)
Quarter: 2018Q4

REPORT INFORMATION
  Report Type: Spontaneous
  Country: BY (occurrence: BY)
  Receive Date: 20181026
  Receipt Date: 20181211
  Transmission Date: 20190205
  Serious: Yes (Death, Hospitalization, Other)
  Sender: FDA-Public Use
  Company Number: BY-SA-2018SA295896

PATIENT
  Age: 30 Year
  Sex: Female

DRUGS (4)
  1. OXYTOCIN. [Suspect]
     Active Substance: OXYTOCIN
     Indication: POSTOPERATIVE CARE
     Dosage: UNK
     Route: 065
  2. KETOROLAC [Suspect]
     Active Substance: KETOROLAC\KETOROLAC TROMETHAMINE
     Indication: POSTOPERATIVE CARE
     Dosage: UNK
     Route: 065
  3. CLEXANE [Suspect]
     Active Substance: ENOXAPARIN SODIUM
     Indication: THROMBOSIS PROPHYLAXIS
     Dosage: UNK UNK, UNK
     Route: 065
     Dates: start: 20181009, end: 20181012
  4. CEFOTAXIME SODIUM [Suspect]
     Active Substance: CEFOTAXIME SODIUM
     Indication: POSTOPERATIVE CARE
     Dosage: UNK
     Route: 065

REACTIONS (8)
  - Condition aggravated [Fatal]
  - General physical health deterioration [Unknown]
  - Embolism [Fatal]
  - Loss of consciousness [Fatal]
  - Exposure during pregnancy [Unknown]
  - Premature baby [Unknown]
  - Fall [Fatal]
  - Syncope [Unknown]

NARRATIVE: CASE EVENT DATE: 20181011
